FAERS Safety Report 7607942-4 (Version None)
Quarter: 2011Q3

REPORT INFORMATION
  Report Type: 
  Country: None (occurrence: None)
  Receive Date: 20110714
  Receipt Date: 20110201
  Transmission Date: 20111222
  Serious: Yes (Death, Other)
  Sender: FDA-Public Use
  Company Number: US-BAYER-201041705NA

PATIENT
  Age: 73 Year
  Sex: Male
  Weight: 80 kg

DRUGS (12)
  1. LOPRESSOR [Concomitant]
     Dosage: 25 MG, ONCE
     Route: 048
     Dates: start: 20070418, end: 20070418
  2. RED BLOOD CELLS [Concomitant]
     Dosage: 1 U, UNK
     Route: 042
     Dates: start: 20070418, end: 20070418
  3. LASIX [Concomitant]
     Dosage: 40 MG, ONCE
     Route: 042
     Dates: start: 20070418, end: 20070418
  4. MIDAZOLAM HCL [Concomitant]
     Dosage: 15 MG, UNK
     Route: 042
     Dates: start: 20070418, end: 20070419
  5. PAVULON [Concomitant]
     Dosage: 2 MG, UNK
     Route: 042
     Dates: start: 20070418, end: 20070419
  6. HEPARIN [Concomitant]
     Dosage: 31000 U, UNK
     Route: 042
     Dates: start: 20070418, end: 20070419
  7. INSULIN [Concomitant]
     Dosage: 4-6 UNITS/HR
     Route: 042
     Dates: start: 20070418, end: 20070419
  8. TRASYLOL [Suspect]
     Indication: CORONARY ARTERY BYPASS
     Dosage: 100CC PUMP PRIME; 200ML BOLUS FOLLOWED BY INFUSION AT 50CC/HR
     Route: 042
     Dates: start: 20070418, end: 20070419
  9. ACETYLSALICYLIC ACID SRT [Concomitant]
     Dosage: 81 MG, ONCE
     Route: 048
     Dates: start: 20070416
  10. ISOVUE-128 [Concomitant]
     Dosage: 95 ML, UNK
     Route: 042
     Dates: start: 20070417
  11. CEFAZOLIN [Concomitant]
     Dosage: 1 G, ONCE
     Route: 042
     Dates: start: 20070418, end: 20070418
  12. FENTANYL [Concomitant]
     Dosage: 50 MG, UNK
     Route: 042
     Dates: start: 20070418, end: 20070419

REACTIONS (10)
  - STRESS [None]
  - EMOTIONAL DISTRESS [None]
  - UNEVALUABLE EVENT [None]
  - INJURY [None]
  - DEATH [None]
  - ANXIETY [None]
  - PAIN [None]
  - RENAL FAILURE [None]
  - MULTI-ORGAN FAILURE [None]
  - FEAR [None]
